FAERS Safety Report 13120983 (Version 1)
Quarter: 2017Q1

REPORT INFORMATION
  Report Type: Report from Study
  Country: None (occurrence: US)
  Receive Date: 20170117
  Receipt Date: 20170117
  Transmission Date: 20170428
  Serious: Yes (Hospitalization)
  Sender: FDA-Public Use
  Company Number: US-ABBVIE-17K-163-1835337-00

PATIENT
  Age: 13 Year
  Sex: Male

DRUGS (1)
  1. HUMIRA [Suspect]
     Active Substance: ADALIMUMAB
     Indication: CROHN^S DISEASE
     Route: 058
     Dates: start: 20150701

REACTIONS (4)
  - Crohn^s disease [Recovering/Resolving]
  - Oesophageal candidiasis [Recovering/Resolving]
  - Decreased appetite [Unknown]
  - Feeding disorder [Unknown]

NARRATIVE: CASE EVENT DATE: 201610
